FAERS Safety Report 4606745-2 (Version None)
Quarter: 2005Q1

REPORT INFORMATION
  Report Type: 
  Country: None (occurrence: None)
  Receive Date: 20050314
  Receipt Date: 20050221
  Transmission Date: 20050727
  Serious: Yes (Hospitalization)
  Sender: FDA-Public Use
  Company Number: FR-ABBOTT-05P-056-0291615-00

PATIENT
  Age: 36 Year
  Sex: Female

DRUGS (15)
  1. DEPAKOTE [Suspect]
     Indication: MANIA
     Route: 048
     Dates: start: 20041211, end: 20041216
  2. DEPAKOTE [Suspect]
     Route: 048
     Dates: start: 20041207, end: 20041210
  3. ZOPICLONE [Suspect]
     Indication: DELIRIUM
     Route: 048
     Dates: start: 20041214, end: 20041215
  4. ZOPICLONE [Suspect]
     Dates: start: 20041128, end: 20041201
  5. CYAMEMAZINE [Concomitant]
     Indication: DELIRIUM
     Route: 048
     Dates: start: 20041128, end: 20041130
  6. PAROXETINE HYDROCHLORIDE [Concomitant]
     Route: 048
     Dates: start: 20041205, end: 20041207
  7. DIAZEPAM [Concomitant]
     Route: 048
     Dates: start: 20041214, end: 20041215
  8. DIAZEPAM [Concomitant]
     Dosage: 30 MG
     Route: 048
     Dates: start: 20041201, end: 20041202
  9. DIAZEPAM [Concomitant]
     Route: 048
     Dates: start: 20041203, end: 20041204
  10. DIAZEPAM [Concomitant]
     Route: 048
     Dates: start: 20041205, end: 20041207
  11. DIAZEPAM [Concomitant]
     Route: 048
     Dates: start: 20041208, end: 20041213
  12. OLANZAPINE [Concomitant]
     Route: 048
     Dates: start: 20041212, end: 20041216
  13. OLANZAPINE [Concomitant]
     Route: 048
     Dates: start: 20041128, end: 20041230
  14. OLANZAPINE [Concomitant]
     Route: 048
     Dates: start: 20041210, end: 20041211
  15. OLANZAPINE [Concomitant]
     Route: 048
     Dates: start: 20041220

REACTIONS (8)
  - COMA [None]
  - DELIRIUM [None]
  - DRUG LEVEL ABOVE THERAPEUTIC [None]
  - ENCEPHALOPATHY [None]
  - FALL [None]
  - HYPOTONIA [None]
  - MANIA [None]
  - SEDATION [None]
